FAERS Safety Report 9107752 (Version 2)
Quarter: 2013Q1

REPORT INFORMATION
  Report Type: Spontaneous
  Country: CA (occurrence: CA)
  Receive Date: 20130221
  Receipt Date: 20130301
  Transmission Date: 20140127
  Serious: Yes (Other)
  Sender: FDA-Public Use
  Company Number: CA-AMGEN-CANSP2013004611

PATIENT
  Age: 34 Year
  Sex: Female

DRUGS (4)
  1. ENBREL [Suspect]
     Indication: RHEUMATOID ARTHRITIS
     Dosage: 50 MG, QWK
     Route: 058
     Dates: start: 20130114
  2. METHOTREXATE [Concomitant]
     Dosage: UNK
  3. DICLOFENAC [Concomitant]
     Dosage: UNK
  4. SYNTHROID [Concomitant]
     Dosage: UNK

REACTIONS (5)
  - Injection site pain [Recovering/Resolving]
  - Injection site reaction [Recovering/Resolving]
  - Injection site erythema [Recovering/Resolving]
  - Injection site rash [Recovering/Resolving]
  - Injection site swelling [Recovering/Resolving]
